FAERS Safety Report 5453792-7 (Version None)
Quarter: 2007Q3

REPORT INFORMATION
  Report Type: 
  Country: None (occurrence: None)
  Receive Date: 20070917
  Receipt Date: 20070906
  Transmission Date: 20080115
  Serious: Yes (Other)
  Sender: FDA-Public Use
  Company Number: GB-MERCK-0709USA02090

PATIENT
  Age: 77 Year
  Sex: Male

DRUGS (7)
  1. ZOCOR [Suspect]
     Indication: HYPERCHOLESTEROLAEMIA
     Route: 048
  2. PLAVIX [Suspect]
     Indication: ANTICOAGULANT THERAPY
     Route: 048
  3. VASOTEC [Suspect]
     Indication: HYPERTENSION
     Route: 048
  4. TAMSULOSIN HYDROCHLORIDE [Suspect]
     Indication: PROSTATIC DISORDER
     Route: 048
  5. PROSCAR [Concomitant]
     Indication: PROSTATIC DISORDER
     Route: 048
  6. ACETAMINOPHEN [Concomitant]
     Route: 065
  7. MAXITROL [Concomitant]
     Indication: POSTERIOR CAPSULE OPACIFICATION
     Route: 047
     Dates: start: 20070301

REACTIONS (1)
  - HALLUCINATION [None]
